FAERS Safety Report 10464305 (Version 3)
Quarter: 2014Q3

REPORT INFORMATION
  Report Type: Report from Study
  Country: US (occurrence: US)
  Receive Date: 20140919
  Receipt Date: 20140925
  Transmission Date: 20150326
  Serious: Yes (Death, Hospitalization)
  Sender: FDA-Public Use
  Company Number: US-ACTELION-A-US2014-95755

PATIENT
  Age: 73 Year
  Sex: Female

DRUGS (4)
  1. ADCIRCA [Concomitant]
     Active Substance: TADALAFIL
  2. COUMADIN [Concomitant]
     Active Substance: WARFARIN SODIUM
  3. MACITENTAN [Suspect]
     Active Substance: MACITENTAN
     Indication: COR PULMONALE CHRONIC
     Dosage: 10 MG, QD
     Route: 048
     Dates: start: 20131211
  4. TYVASO [Concomitant]
     Active Substance: TREPROSTINIL

REACTIONS (8)
  - Fatigue [Unknown]
  - Pulmonary oedema [Unknown]
  - Dyspnoea [Unknown]
  - Oedema [Unknown]
  - Myocardial oedema [Unknown]
  - Pulmonary arterial hypertension [Unknown]
  - Death [Fatal]
  - Influenza [Unknown]

NARRATIVE: CASE EVENT DATE: 201402
